FAERS Safety Report 10403190 (Version 1)
Quarter: 2014Q1

REPORT INFORMATION
  Report Type: Spontaneous
  Country: US (occurrence: None)
  Receive Date: 20130815
  Receipt Date: 20130815
  Transmission Date: 20141002
  Serious: Yes (Other)
  Sender: FDA-Public Use
  Company Number: ADR-2013-00972

PATIENT
  Age: 25 Year
  Sex: Female

DRUGS (1)
  1. GABLOFEN [Suspect]
     Indication: CRANIOCEREBRAL INJURY

REACTIONS (5)
  - Gait disturbance [None]
  - Pruritus [None]
  - Muscle spasticity [None]
  - Therapeutic response decreased [None]
  - Underdose [None]
